FAERS Safety Report 5762803-0 (Version None)
Quarter: 2008Q2

REPORT INFORMATION
  Report Type: 
  Country: None (occurrence: None)
  Receive Date: 20080609
  Receipt Date: 20080530
  Transmission Date: 20081010
  Serious: Yes (Other)
  Sender: FDA-Public Use
  Company Number: US-TYCO HEALTHCARE/MALLINCKRODT-T200800977

PATIENT

DRUGS (3)
  1. ULTRA-TECHNEKOW [Suspect]
     Indication: RADIOISOTOPE SCAN
     Dosage: UNK, SINGLE
     Route: 042
     Dates: start: 20071017, end: 20071017
  2. THALLOUS CHLORIDE TL 201 [Suspect]
     Dosage: UNK, SINGLE
     Dates: start: 20071017, end: 20071017
  3. MYOVIEW                            /01238501/ [Suspect]
     Dosage: UNK, SINGLE
     Dates: start: 20071017, end: 20071017

REACTIONS (1)
  - HEPATITIS B [None]
